FAERS Safety Report 5217260-X (Version None)
Quarter: 2007Q1

REPORT INFORMATION
  Report Type: 
  Country: None (occurrence: None)
  Receive Date: 20070124
  Receipt Date: 20060309
  Transmission Date: 20070707
  Serious: No
  Sender: FDA-Public Use
  Company Number: US-GLAXOSMITHKLINE-A0441472A

PATIENT
  Age: 23 Year
  Sex: Male

DRUGS (3)
  1. PAXIL [Suspect]
     Dosage: 25MG PER DAY
     Route: 048
     Dates: start: 20031110
  2. PAROXETINE HCL [Suspect]
     Route: 048
  3. NO CONCURRENT MEDICATIONS [Concomitant]

REACTIONS (4)
  - DIZZINESS [None]
  - DRUG INEFFECTIVE [None]
  - OBSESSIVE THOUGHTS [None]
  - WEIGHT DECREASED [None]
